FAERS Safety Report 8982703 (Version 1)
Quarter: 2012Q4

REPORT INFORMATION
  Report Type: Report from Study
  Country: US (occurrence: US)
  Receive Date: 20121224
  Receipt Date: 20121224
  Transmission Date: 20130627
  Serious: Yes (Death)
  Sender: FDA-Public Use
  Company Number: US-ROCHE-1173575

PATIENT
  Sex: Male
  Weight: 72.64 kg

DRUGS (2)
  1. CAPECITABINE [Suspect]
     Indication: COLORECTAL CANCER
     Route: 048
     Dates: start: 20100115, end: 20100309
  2. COUMADIN [Concomitant]
     Dosage: 2 weeks on and 2 weeks off
     Route: 065

REACTIONS (1)
  - Death [Fatal]
